FAERS Safety Report 5254562-5 (Version None)
Quarter: 2007Q1

REPORT INFORMATION
  Report Type: 
  Country: None (occurrence: None)
  Receive Date: 20070302
  Receipt Date: 20070219
  Transmission Date: 20070707
  Serious: Yes (Other)
  Sender: FDA-Public Use
  Company Number: GB-MERCK-0702GBR00100

PATIENT
  Age: 68 Year
  Weight: 78 kg

DRUGS (9)
  1. ZETIA [Suspect]
     Route: 048
  2. ACIPIMOX [Suspect]
     Route: 065
  3. AMIODARONE [Suspect]
     Route: 065
  4. ASPIRIN [Suspect]
     Route: 065
  5. BISOPROLOL [Suspect]
     Route: 065
  6. DIGOXIN [Suspect]
     Route: 065
  7. FUROSEMIDE [Suspect]
     Route: 065
  8. LANSOPRAZOLE [Suspect]
     Route: 065
  9. PERINDOPRIL [Suspect]
     Route: 065

REACTIONS (7)
  - ATRIAL FIBRILLATION [None]
  - DIZZINESS [None]
  - DYSPNOEA [None]
  - FATIGUE [None]
  - OEDEMA [None]
  - PARAESTHESIA [None]
  - SHOCK [None]
